FAERS Safety Report 13877982 (Version 4)
Quarter: 2017Q4

REPORT INFORMATION
  Report Type: Report from Study
  Country: SE (occurrence: SE)
  Receive Date: 20170817
  Receipt Date: 20171017
  Transmission Date: 20180320
  Serious: Yes (Other)
  Sender: FDA-Public Use
  Company Number: SE-UCBSA-2017031444

PATIENT
  Age: 52 Year
  Sex: Female

DRUGS (7)
  1. FEMANEST [Concomitant]
     Indication: PRODUCT USED FOR UNKNOWN INDICATION
  2. SALURES [Concomitant]
     Active Substance: BENDROFLUMETHIAZIDE
     Indication: BLOOD PRESSURE MEASUREMENT
  3. ALVEDON [Concomitant]
     Active Substance: ACETAMINOPHEN
     Indication: PRODUCT USED FOR UNKNOWN INDICATION
  4. CERTOLIZUMAB PEGOL RA [Suspect]
     Active Substance: CERTOLIZUMAB PEGOL
     Indication: SPONDYLITIS
     Dosage: 200 MG, 2X/MONTH
     Route: 058
     Dates: start: 20161207, end: 20170329
  5. MONOPROST [Concomitant]
     Active Substance: LATANOPROST
     Indication: PRODUCT USED FOR UNKNOWN INDICATION
  6. CERTOLIZUMAB PEGOL RA [Suspect]
     Active Substance: CERTOLIZUMAB PEGOL
     Indication: PSORIASIS
     Dosage: 200 MG, 2X/MONTH
     Route: 058
     Dates: start: 20170428, end: 20170529
  7. CANDESARTAN. [Concomitant]
     Active Substance: CANDESARTAN
     Indication: BLOOD PRESSURE MEASUREMENT

REACTIONS (3)
  - Open angle glaucoma [Recovered/Resolved with Sequelae]
  - Hypertension [Recovered/Resolved]
  - Influenza [Unknown]

NARRATIVE: CASE EVENT DATE: 20170510
